FAERS Safety Report 18716037 (Version 1)
Quarter: 2021Q1

REPORT INFORMATION
  Report Type: Spontaneous
  Country: US (occurrence: US)
  Receive Date: 20210107
  Receipt Date: 20210107
  Transmission Date: 20210419
  Serious: Yes (Other)
  Sender: FDA-Public Use
  Company Number: None

PATIENT
  Age: 61 Year
  Sex: Male
  Weight: 78.3 kg

DRUGS (31)
  1. ALBUTEROL. [Concomitant]
     Active Substance: ALBUTEROL
  2. ASCORBIC ACID. [Concomitant]
     Active Substance: ASCORBIC ACID
  3. AZITHROMYCIN ANHYDROUS. [Concomitant]
     Active Substance: AZITHROMYCIN ANHYDROUS
  4. D10W [Concomitant]
     Active Substance: DEXTROSE\WATER
  5. DIPHENHYDRAMINE. [Concomitant]
     Active Substance: DIPHENHYDRAMINE
  6. EPOPROSTENOL. [Concomitant]
     Active Substance: EPOPROSTENOL
  7. BUDESONIDE. [Concomitant]
     Active Substance: BUDESONIDE
  8. CHLORHEXIDINE [Concomitant]
     Active Substance: CHLORHEXIDINE
  9. ENOXAPARIN [Concomitant]
     Active Substance: ENOXAPARIN
  10. FLUCONAZOLE. [Concomitant]
     Active Substance: FLUCONAZOLE
  11. ARTIFICAL TEARS [Concomitant]
     Active Substance: GLYCERIN\HYPROMELLOSE 2910 (15 MPA.S)\POLYETHYLENE GLYCOL 400\PROPYLENE GLYCOL
  12. CEFEPIME [Concomitant]
     Active Substance: CEFEPIME HYDROCHLORIDE
  13. CLONIDINE. [Concomitant]
     Active Substance: CLONIDINE
  14. DEXTROSE. [Concomitant]
     Active Substance: DEXTROSE
  15. DOCUSATE [Concomitant]
     Active Substance: DOCUSATE
  16. CISATRACURIUM. [Concomitant]
     Active Substance: CISATRACURIUM
  17. DEXAMETHASONE. [Concomitant]
     Active Substance: DEXAMETHASONE
  18. DEXMEDETOMIDINE. [Concomitant]
     Active Substance: DEXMEDETOMIDINE
  19. AVETAMINOPHEN [Concomitant]
  20. CHOLECALCIFEROL [Concomitant]
     Active Substance: CHOLECALCIFEROL
  21. CLONAZEPAM. [Concomitant]
     Active Substance: CLONAZEPAM
  22. FAMOTIDINE. [Concomitant]
     Active Substance: FAMOTIDINE
  23. FENTANYYL [Concomitant]
  24. EPINEPHRINE. [Concomitant]
     Active Substance: EPINEPHRINE
  25. ERYTHROMYCIN LACTOBIONATE [Concomitant]
     Active Substance: ERYTHROMYCIN LACTOBIONATE
  26. CHLORHEXIDINE GLUCONATE ORAL RINSE 0.12% [Suspect]
     Active Substance: CHLORHEXIDINE GLUCONATE
     Indication: ANTIBIOTIC PROPHYLAXIS
     Route: 002
     Dates: start: 20201012, end: 20201113
  27. ACETAZOLAMIDE. [Concomitant]
     Active Substance: ACETAZOLAMIDE
  28. ALBUMIN [Concomitant]
     Active Substance: ALBUMIN HUMAN
  29. CEFTOLOZANNE [Concomitant]
  30. CEFTRIAXONE. [Concomitant]
     Active Substance: CEFTRIAXONE
  31. DEXTROSE, UNSPECIFIED FORM. [Concomitant]
     Active Substance: DEXTROSE, UNSPECIFIED FORM

REACTIONS (4)
  - Recalled product [None]
  - COVID-19 [None]
  - Burkholderia infection [None]
  - Suspected product contamination [None]

NARRATIVE: CASE EVENT DATE: 20201111
